FAERS Safety Report 15814198 (Version 1)
Quarter: 2019Q1

REPORT INFORMATION
  Report Type: Spontaneous
  Country: DE (occurrence: DE)
  Receive Date: 20190111
  Receipt Date: 20190111
  Transmission Date: 20190417
  Serious: No
  Sender: FDA-Public Use
  Company Number: DE-JAZZ-2018-DE-002395

PATIENT
  Sex: Female

DRUGS (4)
  1. PRIALT [Suspect]
     Active Substance: ZICONOTIDE ACETATE
     Dosage: 1.05 ?G/ML
     Route: 037
     Dates: start: 201711, end: 201712
  2. PRIALT [Suspect]
     Active Substance: ZICONOTIDE ACETATE
     Dosage: UNK ?G, QH
     Route: 037
     Dates: start: 201712, end: 201801
  3. PRIALT [Suspect]
     Active Substance: ZICONOTIDE ACETATE
     Indication: PAIN
     Dosage: 0.01 ?G, QH
     Route: 037
     Dates: start: 201706, end: 2017
  4. PRIALT [Suspect]
     Active Substance: ZICONOTIDE ACETATE
     Dosage: DOSE ADJUSTMENT
     Route: 037
     Dates: start: 2017, end: 201711

REACTIONS (5)
  - Drug ineffective [Unknown]
  - Anosmia [Unknown]
  - Diplopia [Not Recovered/Not Resolved]
  - Ageusia [Unknown]
  - Fatigue [Unknown]

NARRATIVE: CASE EVENT DATE: 201711
